FAERS Safety Report 15360326 (Version 1)
Quarter: 2018Q3

REPORT INFORMATION
  Report Type: Spontaneous
  Country: US (occurrence: US)
  Receive Date: 20180907
  Receipt Date: 20180907
  Transmission Date: 20181010
  Serious: No
  Sender: FDA-Public Use
  Company Number: US-PFIZER INC-2018091873

PATIENT
  Age: 76 Year
  Sex: Female
  Weight: 51.7 kg

DRUGS (1)
  1. XELJANZ [Suspect]
     Active Substance: TOFACITINIB CITRATE
     Indication: ARTHRITIS
     Dosage: 5 MG, TWICE A DAY
     Route: 048
     Dates: start: 201801

REACTIONS (2)
  - Product use in unapproved indication [Unknown]
  - Bone pain [Unknown]

NARRATIVE: CASE EVENT DATE: 201801
